FAERS Safety Report 7843590 (Version 8)
Quarter: 2013Q3

REPORT INFORMATION
  Report Type: Spontaneous
  Country: US (occurrence: US)
  Receive Date: 20110307
  Receipt Date: 20130802
  Transmission Date: 20140515
  Serious: Yes (Hospitalization, Other)
  Sender: FDA-Public Use
  Company Number: US-ROCHE-746510

PATIENT
  Age: 19 Year
  Sex: Male
  Weight: 62.1 kg

DRUGS (2)
  1. ACCUTANE [Suspect]
     Indication: ACNE
     Route: 065
     Dates: start: 200403, end: 200406
  2. SOTRET [Suspect]
     Indication: PRODUCT USED FOR UNKNOWN INDICATION
     Route: 065
     Dates: start: 200403, end: 200406

REACTIONS (5)
  - Colitis ulcerative [Unknown]
  - Small intestinal obstruction [Unknown]
  - Intestinal haemorrhage [Unknown]
  - Perirectal abscess [Unknown]
  - Depression [Unknown]
